FAERS Safety Report 8313891-9 (Version None)
Quarter: 2012Q2

REPORT INFORMATION
  Report Type: 
  Country: None (occurrence: None)
  Receive Date: 20120426
  Receipt Date: 20120416
  Transmission Date: 20120825
  Serious: Yes (Hospitalization, Other)
  Sender: FDA-Public Use
  Company Number: US-ELI_LILLY_AND_COMPANY-US201105001486

PATIENT
  Sex: Female

DRUGS (8)
  1. FORTEO [Suspect]
     Indication: OSTEOPOROSIS POSTMENOPAUSAL
     Dosage: 20 UG, QD
     Route: 065
     Dates: start: 20110411
  2. FORTEO [Suspect]
     Dosage: 20 UG, QD
     Route: 065
  3. FORTEO [Suspect]
     Dosage: 20 UG, QD
     Route: 065
  4. ASPIRIN [Concomitant]
     Dosage: 81 MG, QD
  5. ZYRTEC [Concomitant]
  6. FORTEO [Suspect]
     Dosage: 20 UG, QD
     Route: 065
  7. FORTEO [Suspect]
     Dosage: 20 UG, QD
  8. VITAMIN TAB [Concomitant]

REACTIONS (20)
  - LETHARGY [None]
  - ASTHENIA [None]
  - NAUSEA [None]
  - FALL [None]
  - WRIST FRACTURE [None]
  - ARTHRITIS [None]
  - DIZZINESS [None]
  - CREPITATIONS [None]
  - PAIN [None]
  - INFLUENZA [None]
  - GASTROENTERITIS VIRAL [None]
  - ABDOMINAL PAIN UPPER [None]
  - HEADACHE [None]
  - MOVEMENT DISORDER [None]
  - FATIGUE [None]
  - DRUG DOSE OMISSION [None]
  - MALAISE [None]
  - HYPOTHYROIDISM [None]
  - MUSCULOSKELETAL STIFFNESS [None]
  - MUSCLE SPASMS [None]
